FAERS Safety Report 9311678 (Version 1)
Quarter: 2013Q2

REPORT INFORMATION
  Report Type: Spontaneous
  Country: US (occurrence: US)
  Receive Date: 20130528
  Receipt Date: 20130528
  Transmission Date: 20140414
  Serious: Yes (Hospitalization)
  Sender: FDA-Public Use
  Company Number: US-SANOFI-AVENTIS-2013SA041182

PATIENT
  Age: 56 Year
  Sex: Female

DRUGS (5)
  1. AUBAGIO [Suspect]
     Indication: MULTIPLE SCLEROSIS
     Route: 048
     Dates: start: 20130224, end: 20130326
  2. ASPIRIN [Concomitant]
     Indication: PROPHYLAXIS
     Dosage: THERAPY START DATE- YEARS
  3. VENLAFAXINE HYDROCHLORIDE [Concomitant]
     Indication: DEPRESSION
     Dosage: THERAPY START DATE - YEARS
  4. DETROL [Concomitant]
     Indication: BLADDER DISORDER
     Dosage: THERAPY START DATE - YEARS
  5. SULFASALAZINE [Concomitant]
     Indication: COLITIS
     Dosage: THERAPY START DATE - YEARS

REACTIONS (12)
  - Chest discomfort [Recovered/Resolved]
  - Heart rate increased [Recovered/Resolved]
  - Back pain [Recovered/Resolved]
  - Fatigue [Recovered/Resolved]
  - Asthenia [Recovered/Resolved]
  - Nausea [Recovered/Resolved]
  - Paraesthesia [Recovered/Resolved]
  - Alopecia [Recovered/Resolved]
  - Facial pain [Recovered/Resolved]
  - Palpitations [Recovered/Resolved]
  - Rash [Recovered/Resolved]
  - Feeling abnormal [Recovered/Resolved]
